FAERS Safety Report 4924906-X (Version None)
Quarter: 2006Q1

REPORT INFORMATION
  Report Type: 
  Country: None (occurrence: None)
  Receive Date: 20060227
  Receipt Date: 20050912
  Transmission Date: 20060701
  Serious: Yes (Hospitalization)
  Sender: FDA-Public Use
  Company Number: US-MERCK-0509USA01440

PATIENT
  Age: 76 Year
  Sex: Female

DRUGS (1)
  1. VIOXX [Suspect]
     Indication: ARTHRALGIA
     Route: 048
     Dates: start: 20020301, end: 20030401

REACTIONS (16)
  - CARPAL TUNNEL SYNDROME [None]
  - CEREBROVASCULAR ACCIDENT PROPHYLAXIS [None]
  - CYSTOCELE [None]
  - GASTRIC ULCER HAEMORRHAGE [None]
  - HYPERLIPIDAEMIA [None]
  - HYPERTENSIVE HEART DISEASE [None]
  - MEMORY IMPAIRMENT [None]
  - NEUROPATHY PERIPHERAL [None]
  - NIGHT SWEATS [None]
  - PAIN IN EXTREMITY [None]
  - RADICULOPATHY [None]
  - RESTLESS LEGS SYNDROME [None]
  - SPINAL DISORDER [None]
  - TRANSIENT ISCHAEMIC ATTACK [None]
  - VISUAL ACUITY REDUCED [None]
  - WEIGHT DECREASED [None]
